FAERS Safety Report 8615055-8 (Version None)
Quarter: 2012Q3

REPORT INFORMATION
  Report Type: 
  Country: None (occurrence: None)
  Receive Date: 20120823
  Receipt Date: 20120817
  Transmission Date: 20120928
  Serious: Yes (Other)
  Sender: FDA-Public Use
  Company Number: PHEH2012US004103

PATIENT
  Sex: Female

DRUGS (1)
  1. GILENYA [Suspect]
     Indication: MULTIPLE SCLEROSIS
     Dosage: 0.5 MG, QD
     Route: 048
     Dates: start: 20120130, end: 20120624

REACTIONS (5)
  - DIABETIC RETINOPATHY [None]
  - FULL BLOOD COUNT ABNORMAL [None]
  - VISUAL IMPAIRMENT [None]
  - LYMPHADENOPATHY [None]
  - MACULAR OEDEMA [None]
